FAERS Safety Report 9674791 (Version 1)
Quarter: 2013Q4

REPORT INFORMATION
  Report Type: Spontaneous
  Country: US (occurrence: US)
  Receive Date: 20131107
  Receipt Date: 20131107
  Transmission Date: 20140711
  Serious: Yes (Hospitalization)
  Sender: FDA-Public Use
  Company Number: US-BAYER-2013-135099

PATIENT
  Age: 21 Year
  Sex: Female
  Weight: 62 kg

DRUGS (7)
  1. YAZ [Suspect]
  2. YASMIN [Suspect]
     Indication: PREMENSTRUAL SYNDROME
  3. YASMIN [Suspect]
     Indication: DYSMENORRHOEA
  4. VICODIN [Concomitant]
     Indication: DYSMENORRHOEA
     Dosage: UNK UNK, PRN
  5. VITACAL [Concomitant]
  6. ADVIL [Concomitant]
  7. ALEVE [Concomitant]

REACTIONS (2)
  - Deep vein thrombosis [None]
  - Pelvic venous thrombosis [None]
